FAERS Safety Report 5389310-1 (Version None)
Quarter: 2007Q3

REPORT INFORMATION
  Report Type: 
  Country: None (occurrence: None)
  Receive Date: 20070717
  Receipt Date: 20070716
  Transmission Date: 20080115
  Serious: Yes (Other)
  Sender: FDA-Public Use
  Company Number: A0663962A

PATIENT
  Age: 60 Year
  Sex: Female

DRUGS (3)
  1. CITRUCEL SUGAR-FREE SUSPENSION ORANGE [Suspect]
     Indication: DRUG USE FOR UNKNOWN INDICATION
     Route: 065
  2. CITRUCEL CHOCOLATE FIBERSHAKE [Suspect]
     Indication: DRUG USE FOR UNKNOWN INDICATION
     Route: 065
  3. CITRUCEL [Suspect]
     Route: 065

REACTIONS (2)
  - DRUG INEFFECTIVE [None]
  - RECTAL HAEMORRHAGE [None]
